FAERS Safety Report 11243145 (Version 1)
Quarter: 2015Q3

REPORT INFORMATION
  Report Type: Spontaneous
  Country: US (occurrence: US)
  Receive Date: 20150707
  Receipt Date: 20150707
  Transmission Date: 20151125
  Serious: No
  Sender: FDA-Public Use
  Company Number: US-BIOGENIDEC-2015BI092907

PATIENT
  Age: 46 Year
  Sex: Female

DRUGS (1)
  1. AVONEX [Suspect]
     Active Substance: INTERFERON BETA-1A
     Indication: MULTIPLE SCLEROSIS
     Route: 030
     Dates: start: 200404

REACTIONS (4)
  - Salivary hypersecretion [Not Recovered/Not Resolved]
  - Nervousness [Unknown]
  - Muscle rigidity [Unknown]
  - Amnesia [Unknown]

NARRATIVE: CASE EVENT DATE: 200605
